FAERS Safety Report 7193333-X (Version None)
Quarter: 2010Q4

REPORT INFORMATION
  Report Type: 
  Country: None (occurrence: None)
  Receive Date: 20101124
  Receipt Date: 20100901
  Transmission Date: 20110411
  Serious: No
  Sender: FDA-Public Use
  Company Number: 018133

PATIENT

DRUGS (1)
  1. LACOSAMIDE [Suspect]

REACTIONS (3)
  - ANXIETY [None]
  - DIZZINESS [None]
  - THYROID FUNCTION TEST ABNORMAL [None]
